FAERS Safety Report 8995346 (Version 2)
Quarter: 2013Q1

REPORT INFORMATION
  Report Type: Spontaneous
  Country: JP (occurrence: JP)
  Receive Date: 20130102
  Receipt Date: 20130122
  Transmission Date: 20140127
  Serious: Yes (Hospitalization)
  Sender: FDA-Public Use
  Company Number: JP-ASTRAZENECA-2012SE96401

PATIENT
  Age: 87 Year
  Sex: Male

DRUGS (19)
  1. MEROPEN [Suspect]
     Indication: PNEUMONIA
     Route: 042
     Dates: start: 20121213, end: 20121217
  2. TARGOCID [Suspect]
     Route: 065
     Dates: start: 20121213, end: 20121217
  3. AMBISOME [Suspect]
     Indication: CANDIDA INFECTION
     Route: 065
     Dates: start: 20121211, end: 20121217
  4. GLOVENIN-I [Concomitant]
     Indication: INFECTION
     Route: 042
     Dates: start: 20121213, end: 20121215
  5. ALBUMIN [Concomitant]
     Indication: HYPOALBUMINAEMIA
     Route: 042
     Dates: start: 20121213, end: 20121219
  6. LENDORMIN D [Concomitant]
     Indication: INSOMNIA
     Route: 048
     Dates: start: 20121109
  7. CARDENALIN [Concomitant]
     Indication: HYPERTENSION
     Route: 048
     Dates: start: 20121204
  8. COVERSYL [Concomitant]
     Indication: HYPERTENSION
     Route: 048
     Dates: start: 20121208
  9. CONIEL [Concomitant]
     Indication: HYPERTENSION
     Route: 048
     Dates: start: 20121124
  10. ARTIST [Concomitant]
     Indication: HYPERTENSION
     Route: 048
     Dates: start: 20121201
  11. PERSANTIN-L [Concomitant]
     Indication: PROTEINURIA
     Route: 048
     Dates: start: 20121201
  12. FERROMIA [Concomitant]
     Indication: IRON DEFICIENCY ANAEMIA
     Route: 048
     Dates: start: 20121210
  13. BENET [Concomitant]
     Indication: OSTEOPOROSIS
     Route: 048
     Dates: start: 20121129
  14. THYRADIN S [Concomitant]
     Indication: HYPOTHYROIDISM
     Route: 048
     Dates: start: 20121110
  15. FEBURIC [Concomitant]
     Indication: HYPERURICAEMIA
     Route: 048
     Dates: start: 20121208
  16. LASIX [Concomitant]
     Indication: CARDIAC FAILURE
     Route: 048
     Dates: start: 20121116
  17. BIOFERMIN R [Concomitant]
     Indication: DIARRHOEA
     Route: 048
     Dates: start: 20121108
  18. CONCENTRATED HUMAN BLOOD PLATELET [Concomitant]
     Dates: start: 20121107, end: 20121107
  19. CONCENTRATED HUMAN BLOOD PLATELET [Concomitant]
     Dates: start: 20121219, end: 20121219

REACTIONS (4)
  - Hepatic function abnormal [Recovered/Resolved]
  - Granulocyte count decreased [Recovered/Resolved]
  - Drug eruption [Recovered/Resolved]
  - Platelet count decreased [Recovered/Resolved]
